FAERS Safety Report 22090233 (Version 1)
Quarter: 2023Q1

REPORT INFORMATION
  Report Type: Spontaneous
  Country: US (occurrence: None)
  Receive Date: 20230313
  Receipt Date: 20230313
  Transmission Date: 20230418
  Serious: No
  Sender: FDA-Public Use
  Company Number: None

PATIENT
  Age: 65 Year
  Sex: Male
  Weight: 91.81 kg

DRUGS (8)
  1. INLYTA [Suspect]
     Active Substance: AXITINIB
     Indication: Renal cancer
     Dosage: FREQUENCY : TWICE A DAY;?
     Route: 048
     Dates: start: 20221015
  2. ASPIRIN [Concomitant]
  3. ATORVASTATIN [Concomitant]
  4. FOSINOPRIL [Concomitant]
  5. ISOSORBIDE [Concomitant]
  6. METOPROLOL [Concomitant]
  7. PANTOPRAZOLE [Concomitant]
  8. PLAVIX [Concomitant]

REACTIONS (2)
  - Laboratory test abnormal [None]
  - Therapy interrupted [None]
